FAERS Safety Report 5320892-1 (Version None)
Quarter: 2007Q2

REPORT INFORMATION
  Report Type: 
  Country: None (occurrence: None)
  Receive Date: 20070504
  Receipt Date: 20070425
  Transmission Date: 20071010
  Serious: Yes (Other)
  Sender: FDA-Public Use
  Company Number: GXKR2007JP02782

PATIENT
  Age: 52 Year
  Sex: Male

DRUGS (7)
  1. RIFAMPICIN [Suspect]
     Indication: PULMONARY TUBERCULOSIS
     Dosage: ORAL
     Route: 048
     Dates: start: 20050615, end: 20051021
  2. RIFAMPICIN [Suspect]
     Indication: PULMONARY TUBERCULOSIS
     Dosage: ORAL
     Route: 048
     Dates: start: 20061020, end: 20061021
  3. PREDNISOLONE [Concomitant]
  4. ETHAMBUTOL HYDROCHLORIDE [Concomitant]
  5. ETHIONAMIDE (ETHIONAMIDE) [Concomitant]
  6. STREPTOMYCIN SULFATE (STREPTOMYCIN SULFATE) [Concomitant]
  7. LEVOFLOXACIN [Concomitant]

REACTIONS (5)
  - ABDOMINAL PAIN [None]
  - HENOCH-SCHONLEIN PURPURA [None]
  - HEPATITIS C [None]
  - MELAENA [None]
  - RASH [None]
